FAERS Safety Report 24874208 (Version 1)
Quarter: 2025Q1

REPORT INFORMATION
  Report Type: Spontaneous
  Country: US (occurrence: None)
  Receive Date: 20250120
  Receipt Date: 20250120
  Transmission Date: 20250409
  Serious: Yes (Hospitalization, Other)
  Sender: FDA-CTU
  Company Number: None

PATIENT
  Age: 58 Year
  Sex: Female

DRUGS (1)
  1. KESIMPTA [Suspect]
     Active Substance: OFATUMUMAB

REACTIONS (11)
  - Brain oedema [None]
  - Visual impairment [None]
  - Gait disturbance [None]
  - Oropharyngeal spasm [None]
  - Dysphonia [None]
  - Swelling face [None]
  - Mouth swelling [None]
  - Tympanic membrane perforation [None]
  - Rash [None]
  - Urticaria [None]
  - Skin exfoliation [None]

NARRATIVE: CASE EVENT DATE: 20250107
